FAERS Safety Report 9643596 (Version 2)
Quarter: 2013Q4

REPORT INFORMATION
  Report Type: Spontaneous
  Country: US (occurrence: US)
  Receive Date: 20131024
  Receipt Date: 20131125
  Transmission Date: 20140711
  Serious: Yes (Hospitalization)
  Sender: FDA-Public Use
  Company Number: US-GLAXOSMITHKLINE-A1046750A

PATIENT
  Age: 47 Year
  Sex: Female

DRUGS (2)
  1. VENTOLIN [Suspect]
     Indication: ASTHMA
     Route: 065
     Dates: start: 20110818
  2. ADVAIR [Concomitant]
     Indication: PRODUCT USED FOR UNKNOWN INDICATION
     Route: 065
     Dates: start: 20110818

REACTIONS (4)
  - Lung lobectomy [Unknown]
  - Pneumonia [Unknown]
  - Breast neoplasm [Unknown]
  - Cardiac failure congestive [Unknown]
